FAERS Safety Report 9924589 (Version 1)
Quarter: 2014Q1

REPORT INFORMATION
  Report Type: Spontaneous
  Country: US (occurrence: US)
  Receive Date: 20140226
  Receipt Date: 20140226
  Transmission Date: 20141002
  Serious: No
  Sender: FDA-Public Use
  Company Number: US-PFIZER INC-2014052760

PATIENT
  Age: 39 Year
  Sex: Female

DRUGS (2)
  1. CELEBREX [Suspect]
     Indication: MIXED CONNECTIVE TISSUE DISEASE
     Dosage: UNK, 1X/DAY
     Dates: start: 20140218
  2. LISINOPRIL [Concomitant]
     Indication: HYPERTENSION
     Dosage: 10 MG, DAILY

REACTIONS (2)
  - Rash [Not Recovered/Not Resolved]
  - Off label use [Unknown]
